FAERS Safety Report 24070602 (Version 1)
Quarter: 2024Q3

REPORT INFORMATION
  Report Type: Spontaneous
  Country: US (occurrence: None)
  Receive Date: 20240709
  Receipt Date: 20240709
  Transmission Date: 20241017
  Serious: Yes (Other)
  Sender: Public
  Company Number: None

PATIENT
  Age: 82 Year
  Sex: Female
  Weight: 53.55 kg

DRUGS (5)
  1. AMIODARONE [Suspect]
     Active Substance: AMIODARONE
     Indication: Atrial fibrillation
     Dosage: FREQUENCY : TWICE A DAY;?
     Route: 048
     Dates: start: 20240319, end: 20240621
  2. DIGOXIN [Suspect]
     Active Substance: DIGOXIN
  3. LOSARTAN [Concomitant]
  4. Nexium [Concomitant]
  5. VITAMIN C [Concomitant]
     Active Substance: ASCORBIC ACID

REACTIONS (9)
  - Nausea [None]
  - Headache [None]
  - Paraesthesia [None]
  - Constipation [None]
  - Fatigue [None]
  - Nightmare [None]
  - Pneumonia [None]
  - Stress [None]
  - Therapy interrupted [None]

NARRATIVE: CASE EVENT DATE: 20240319
